FAERS Safety Report 24841605 (Version 1)
Quarter: 2025Q1

REPORT INFORMATION
  Report Type: Spontaneous
  Country: PT (occurrence: PT)
  Receive Date: 20250114
  Receipt Date: 20250114
  Transmission Date: 20250409
  Serious: Yes (Death, Hospitalization, Other)
  Sender: IPSEN BIOPHARMACEUTICALS, INC.
  Company Number: PT-IPSEN Group, Research and Development-2025-00821

PATIENT
  Age: 69 Year
  Sex: Male

DRUGS (2)
  1. LANREOTIDE ACETATE [Suspect]
     Active Substance: LANREOTIDE ACETATE
     Indication: Pancreatic neuroendocrine tumour
     Route: 065
  2. DIAZOXIDE [Concomitant]
     Active Substance: DIAZOXIDE

REACTIONS (4)
  - COVID-19 [Fatal]
  - Malignant neoplasm progression [Unknown]
  - Hypoglycaemia [Unknown]
  - Hyperglycaemia [Unknown]
